FAERS Safety Report 4650390-X (Version None)
Quarter: 2005Q2

REPORT INFORMATION
  Report Type: 
  Country: None (occurrence: None)
  Receive Date: 20050502
  Receipt Date: 20050422
  Transmission Date: 20051028
  Serious: Yes (Other)
  Sender: FDA-Public Use
  Company Number: US-ABBOTT-05P-163-0298302-00

PATIENT
  Sex: Male
  Weight: 89.892 kg

DRUGS (14)
  1. HUMIRA [Suspect]
     Indication: RHEUMATOID ARTHRITIS
     Route: 058
     Dates: start: 20030701
  2. PRANDIN [Concomitant]
     Indication: DIABETES MELLITUS
     Route: 048
  3. FENTANYL [Concomitant]
     Indication: PAIN
     Route: 061
  4. HYDROXYCHLOROQUINE SULFATE [Concomitant]
     Indication: RHEUMATOID ARTHRITIS
     Route: 048
  5. NABUMETONE [Concomitant]
     Indication: RHEUMATOID ARTHRITIS
     Route: 048
  6. NABUMETONE [Concomitant]
     Route: 048
  7. PREDNISONE [Concomitant]
     Indication: RHEUMATOID ARTHRITIS
     Route: 048
  8. RANITIDINE [Concomitant]
     Indication: PROPHYLAXIS AGAINST GASTROINTESTINAL ULCER
     Route: 048
  9. LEVOTHYROXINE SODIUM [Concomitant]
     Indication: HYPOTHYROIDISM
     Route: 048
  10. TERAZOSIN HCL [Concomitant]
     Indication: URINARY TRACT DISORDER
     Route: 048
  11. GABAPENTIN [Concomitant]
     Indication: MUSCLE SPASMS
     Route: 048
  12. METHOTREXATE [Concomitant]
     Indication: RHEUMATOID ARTHRITIS
     Route: 048
  13. SENNOSIDES [Concomitant]
     Indication: CONSTIPATION PROPHYLAXIS
     Route: 048
  14. ETODOLAC [Concomitant]
     Indication: SWELLING
     Route: 048

REACTIONS (3)
  - ABDOMINAL HERNIA [None]
  - ERYTHEMA [None]
  - OEDEMA PERIPHERAL [None]
